FAERS Safety Report 17710295 (Version 1)
Quarter: 2020Q2

REPORT INFORMATION
  Report Type: Report from Study
  Country: US (occurrence: US)
  Receive Date: 20200427
  Receipt Date: 20200427
  Transmission Date: 20200714
  Serious: Yes (Other)
  Sender: FDA-Public Use
  Company Number: US-TECHDOW-2020TECHDOW000360

PATIENT

DRUGS (1)
  1. HEPARIN SODIUM INJECTION, USP (PRESERVATIVE FREE) [Suspect]
     Active Substance: HEPARIN SODIUM

REACTIONS (1)
  - Vascular stent thrombosis [None]
